FAERS Safety Report 22112458 (Version 2)
Quarter: 2023Q1

REPORT INFORMATION
  Report Type: Spontaneous
  Country: CN (occurrence: CN)
  Receive Date: 20230319
  Receipt Date: 20230323
  Transmission Date: 20230417
  Serious: Yes (Other)
  Sender: FDA-Public Use
  Company Number: CN-MLMSERVICE-20230302-4135900-1

PATIENT
  Age: 60 Year
  Sex: Male

DRUGS (6)
  1. CISPLATIN [Suspect]
     Active Substance: CISPLATIN
     Indication: Transitional cell carcinoma
     Dosage: 70 MG/M2 FROM THE SECOND DAY OF THE THREE-WEEK CYCLE
     Route: 042
     Dates: start: 202009
  2. GEMCITABINE [Suspect]
     Active Substance: GEMCITABINE
     Indication: Transitional cell carcinoma
     Dosage: 1000 MG/M2 ON DAY ONE AND EIGHT EVERY THREE WEEKS
     Route: 042
     Dates: start: 202009
  3. TISLELIZUMAB [Suspect]
     Active Substance: TISLELIZUMAB
     Indication: Bladder cancer
     Dosage: 200 MG ON DAY ONE OF THE THREE-WEEK CYCLE
     Route: 042
     Dates: start: 202009
  4. CISPLATIN [Suspect]
     Active Substance: CISPLATIN
     Indication: Bladder cancer
     Dosage: 70 MG/M2 FROM THE SECOND DAY OF THE THREE-WEEK CYCLE
     Dates: start: 202009
  5. GEMCITABINE [Suspect]
     Active Substance: GEMCITABINE
     Indication: Bladder cancer
     Dosage: 1000 MG/M2 ON DAY ONE AND EIGHT EVERY THREE WEEKS
     Route: 042
     Dates: start: 202009
  6. TISLELIZUMAB [Suspect]
     Active Substance: TISLELIZUMAB
     Indication: Transitional cell carcinoma
     Dosage: 200 MG ON DAY ONE OF THE THREE-WEEK CYCLE
     Route: 042
     Dates: start: 202009

REACTIONS (3)
  - Hypothyroidism [Unknown]
  - Leukopenia [Unknown]
  - Anaemia [Unknown]
